FAERS Safety Report 4413813-7 (Version None)
Quarter: 2004Q3

REPORT INFORMATION
  Report Type: 
  Country: None (occurrence: None)
  Receive Date: 20040728
  Receipt Date: 20040714
  Transmission Date: 20050211
  Serious: Yes (Hospitalization)
  Sender: FDA-Public Use
  Company Number: A0518292A

PATIENT
  Sex: Female

DRUGS (5)
  1. GAVISCON [Suspect]
     Indication: GASTROOESOPHAGEAL REFLUX DISEASE
     Dosage: AS REQUIRED/ORAL
     Route: 048
     Dates: end: 19900101
  2. GAVISCON [Suspect]
     Dosage: AS REQUIRED/ORAL
     Route: 048
  3. SLIMI-FAST (SLIM -FAST) [Suspect]
  4. PAIN MEDICATION [Concomitant]
  5. DIPHENHYDRAMINE HCL [Concomitant]

REACTIONS (3)
  - BLINDNESS TRANSIENT [None]
  - HEADACHE [None]
  - HYPERSENSITIVITY [None]
